FAERS Safety Report 4899917-3 (Version None)
Quarter: 2006Q1

REPORT INFORMATION
  Report Type: 
  Country: None (occurrence: None)
  Receive Date: 20060118
  Receipt Date: 20050606
  Transmission Date: 20060701
  Serious: No
  Sender: FDA-Public Use
  Company Number: 2005001064

PATIENT
  Age: 84 Year
  Sex: Female
  Weight: 52.1637 kg

DRUGS (6)
  1. TARCEVA [Suspect]
     Indication: NON-SMALL CELL LUNG CANCER
     Dosage: 150 MG (QD), ORAL
     Route: 048
     Dates: start: 20050101
  2. SYNTHROID [Concomitant]
  3. CLONIDINE [Concomitant]
  4. WARFARIN SODIUM [Concomitant]
  5. HCTZ (HYDROCHLOROTHIAZIDE) [Concomitant]
  6. DIGOXIN [Concomitant]

REACTIONS (2)
  - BLOOD PRESSURE INCREASED [None]
  - WEIGHT DECREASED [None]
